FAERS Safety Report 8206225-1 (Version None)
Quarter: 2012Q1

REPORT INFORMATION
  Report Type: 
  Country: None (occurrence: None)
  Receive Date: 20120313
  Receipt Date: 20120306
  Transmission Date: 20120608
  Serious: Yes (Other)
  Sender: FDA-Public Use
  Company Number: PHBS2006JP15178

PATIENT
  Age: 66 Year
  Sex: Female

DRUGS (3)
  1. DEXAMETHASONE [Suspect]
  2. AREDIA [Suspect]
     Indication: MULTIPLE MYELOMA
     Route: 042
  3. INCADRONIC ACID [Suspect]
     Route: 065

REACTIONS (1)
  - OSTEONECROSIS OF JAW [None]
